FAERS Safety Report 23311131 (Version 2)
Quarter: 2023Q4

REPORT INFORMATION
  Report Type: Spontaneous
  Country: US (occurrence: US)
  Receive Date: 20231218
  Receipt Date: 20231221
  Transmission Date: 20240110
  Serious: Yes (Death)
  Sender: FDA-Public Use
  Company Number: US-BAUSCH-BL-2023-018605

PATIENT
  Age: 85 Year
  Sex: Female

DRUGS (3)
  1. BUPROPION [Suspect]
     Active Substance: BUPROPION
     Indication: Product used for unknown indication
     Dosage: INGESTION
     Route: 048
  2. LAMOTRIGINE [Suspect]
     Active Substance: LAMOTRIGINE
     Indication: Product used for unknown indication
     Dosage: INGESTION
     Route: 048
  3. DONEPEZIL [Suspect]
     Active Substance: DONEPEZIL
     Indication: Product used for unknown indication
     Dosage: INGESTION
     Route: 048

REACTIONS (1)
  - Completed suicide [Fatal]
